FAERS Safety Report 8777848 (Version 1)
Quarter: 2012Q4

REPORT INFORMATION
  Report Type: 
  Country: JP (occurrence: JP)
  Receive Date: 20120911
  Receipt Date: 20120911
  Transmission Date: 20130627
  Serious: Yes (Death)
  Sender: FDA-Public Use
  Company Number: PHHY2012JP077386

PATIENT
  Age: 25 Year
  Sex: Female

DRUGS (2)
  1. OCTREOTIDE [Suspect]
     Indication: PHAEOCHROMOCYTOMA
     Dosage: 20 mg, monthly
  2. OCTREOTIDE [Suspect]
     Dosage: 40 mg, monthly

REACTIONS (5)
  - Respiratory failure [Fatal]
  - Metastases to lung [Fatal]
  - Metastases to liver [Fatal]
  - Hypokalaemia [Not Recovered/Not Resolved]
  - Diarrhoea [Not Recovered/Not Resolved]
